FAERS Safety Report 13250254 (Version 1)
Quarter: 2017Q1

REPORT INFORMATION
  Report Type: Spontaneous
  Country: US (occurrence: US)
  Receive Date: 20170218
  Receipt Date: 20170218
  Transmission Date: 20170428
  Serious: No
  Sender: FDA-Public Use
  Company Number: US-TEVA-727185ACC

PATIENT
  Age: 42 Year
  Sex: Female

DRUGS (7)
  1. OMEPRAZOLE. [Concomitant]
     Active Substance: OMEPRAZOLE
  2. PRILOSEC [Concomitant]
     Active Substance: OMEPRAZOLE MAGNESIUM
     Dates: start: 20130430
  3. MULTIVITAMIN AND MINERALS [Concomitant]
     Active Substance: MINERALS\VITAMINS
     Dates: start: 20130430
  4. VITAMIN D [Concomitant]
     Active Substance: CHOLECALCIFEROL
     Dates: start: 20130430
  5. COPAXONE [Suspect]
     Active Substance: GLATIRAMER ACETATE
     Indication: MULTIPLE SCLEROSIS
     Route: 058
     Dates: start: 20160324
  6. REBIF [Concomitant]
     Active Substance: INTERFERON BETA-1A
     Dosage: 44/0.5 (UNITS UNSPECIFIED)
     Dates: start: 20130430
  7. CITALOPRAM [Concomitant]
     Active Substance: CITALOPRAM HYDROBROMIDE
     Dates: start: 20130430

REACTIONS (2)
  - Immediate post-injection reaction [Unknown]
  - Chills [Unknown]

NARRATIVE: CASE EVENT DATE: 20161129
